FAERS Safety Report 10385352 (Version 5)
Quarter: 2015Q3

REPORT INFORMATION
  Report Type: Spontaneous
  Country: US (occurrence: US)
  Receive Date: 20140814
  Receipt Date: 20150821
  Transmission Date: 20151125
  Serious: Yes (Death, Hospitalization, Other)
  Sender: FDA-Public Use
  Company Number: US-009507513-1408USA007553

PATIENT
  Sex: Female
  Weight: 77.98 kg

DRUGS (1)
  1. JANUVIA [Suspect]
     Active Substance: SITAGLIPTIN PHOSPHATE
     Indication: TYPE 2 DIABETES MELLITUS
     Dosage: 100 MG, QD
     Route: 048
     Dates: start: 20111228, end: 20120412

REACTIONS (27)
  - Pancreatic carcinoma [Fatal]
  - Metastases to lung [Unknown]
  - Pulmonary hypertension [Unknown]
  - Hypertension [Unknown]
  - Shoulder operation [Unknown]
  - Asterixis [Unknown]
  - Neoplasm malignant [Unknown]
  - Cardiac failure [Unknown]
  - Deep vein thrombosis [Unknown]
  - Pneumonia [Unknown]
  - Sjogren^s syndrome [Unknown]
  - Leukocytosis [Unknown]
  - Chronic kidney disease [Not Recovered/Not Resolved]
  - Mitral valve incompetence [Unknown]
  - Pulmonary mass [Unknown]
  - Clumsiness [Unknown]
  - Psoas abscess [Unknown]
  - Pulmonary embolism [Unknown]
  - Lung abscess [Unknown]
  - Cervical spinal stenosis [Unknown]
  - Factor II mutation [Unknown]
  - Immunosuppression [Unknown]
  - Constipation [Unknown]
  - Metastases to liver [Unknown]
  - Rheumatoid arthritis [Unknown]
  - Muscular weakness [Unknown]
  - Tonsillectomy [Unknown]

NARRATIVE: CASE EVENT DATE: 2012
